FAERS Safety Report 4405119-7 (Version None)
Quarter: 2004Q3

REPORT INFORMATION
  Report Type: 
  Country: None (occurrence: None)
  Receive Date: 20040719
  Receipt Date: 20040706
  Transmission Date: 20050211
  Serious: Yes (Disabling, Other)
  Sender: FDA-Public Use
  Company Number: 2004045553

PATIENT
  Age: 53 Year
  Sex: Male
  Weight: 68.0396 kg

DRUGS (2)
  1. LIPITOR [Suspect]
     Indication: BLOOD CHOLESTEROL INCREASED
  2. ANALGESICS (ANALGESICS) [Concomitant]

REACTIONS (3)
  - DIFFICULTY IN WALKING [None]
  - DISEASE RECURRENCE [None]
  - JOINT DISLOCATION [None]
